FAERS Safety Report 18592547 (Version 4)
Quarter: 2020Q4

REPORT INFORMATION
  Report Type: Report from Study
  Country: US (occurrence: US)
  Receive Date: 20201208
  Receipt Date: 20201222
  Transmission Date: 20210114
  Serious: Yes (Life-Threatening, Other)
  Sender: FDA-Public Use
  Company Number: US-PFIZER INC-2020480098

PATIENT
  Age: 73 Year
  Sex: Male
  Weight: 104.3 kg

DRUGS (11)
  1. DEXAMETHASONE. [Concomitant]
     Active Substance: DEXAMETHASONE
     Indication: SUSPECTED COVID-19
     Dosage: UNK
     Route: 048
     Dates: start: 20201123
  2. REMDESIVIR. [Concomitant]
     Active Substance: REMDESIVIR
     Indication: COVID-19
     Dosage: 200 MG, SINGLE
     Route: 042
     Dates: start: 20201124, end: 20201124
  3. PLACEBO [Suspect]
     Active Substance: UNSPECIFIED INGREDIENT
     Dosage: 2 MG, 1X/DAY
     Route: 048
     Dates: start: 20201125
  4. CONVALESCENT PLASMA [Concomitant]
     Active Substance: HUMAN PLASMA
     Indication: COVID-19
     Dosage: 217 ML, SINGLE
     Route: 042
     Dates: start: 20201124, end: 20201124
  5. ZINC SULFATE. [Concomitant]
     Active Substance: ZINC SULFATE
     Dosage: 220 MG, 1X/DAY
     Dates: start: 20201124
  6. AZITHROMYCIN ANHYDROUS. [Concomitant]
     Active Substance: AZITHROMYCIN ANHYDROUS
     Indication: SUSPECTED COVID-19
     Dosage: UNK
     Route: 042
     Dates: start: 20201123, end: 20201123
  7. CEFTRIAXONE. [Concomitant]
     Active Substance: CEFTRIAXONE
     Indication: SUSPECTED COVID-19
     Dosage: UNK
     Route: 042
     Dates: start: 20201123, end: 20201124
  8. REMDESIVIR. [Concomitant]
     Active Substance: REMDESIVIR
     Dosage: 100 MG, 1X/DAY
     Route: 042
     Dates: start: 20201125, end: 20201128
  9. PLACEBO [Suspect]
     Active Substance: UNSPECIFIED INGREDIENT
     Indication: COVID-19
     Dosage: 6 MG, 1X/DAY
     Route: 048
     Dates: start: 20201124, end: 20201124
  10. FUROSEMIDE. [Concomitant]
     Active Substance: FUROSEMIDE
     Indication: RESPIRATORY FAILURE
     Dosage: 20 MG, SINGLE
     Route: 048
     Dates: start: 20201124, end: 20201124
  11. ENOXAPARIN [Concomitant]
     Active Substance: ENOXAPARIN
     Indication: THROMBOSIS PROPHYLAXIS
     Dosage: UNK
     Route: 058
     Dates: start: 20201124

REACTIONS (2)
  - Condition aggravated [Recovering/Resolving]
  - Hypoxia [Recovering/Resolving]

NARRATIVE: CASE EVENT DATE: 20201125
